FAERS Safety Report 14490478 (Version 1)
Quarter: 2018Q1

REPORT INFORMATION
  Report Type: Spontaneous
  Country: US (occurrence: US)
  Receive Date: 20180206
  Receipt Date: 20180206
  Transmission Date: 20180509
  Serious: Yes (Other)
  Sender: FDA-Public Use
  Company Number: US-USPHARMA LIMITED-2018-US-000011

PATIENT
  Age: 74 Year
  Sex: Male

DRUGS (1)
  1. NITROGLYCERIN. [Suspect]
     Active Substance: NITROGLYCERIN
     Indication: HYPERTENSIVE EMERGENCY
     Route: 065

REACTIONS (4)
  - Pulmonary oedema [None]
  - Off label use [Unknown]
  - Condition aggravated [Unknown]
  - Hypertensive emergency [None]
